FAERS Safety Report 8605824-2 (Version None)
Quarter: 2012Q3

REPORT INFORMATION
  Report Type: 
  Country: None (occurrence: None)
  Receive Date: 20120820
  Receipt Date: 20120814
  Transmission Date: 20120928
  Serious: Yes (Other)
  Sender: FDA-Public Use
  Company Number: MX-GLAXOSMITHKLINE-A0989759A

PATIENT
  Age: 55 Year
  Sex: Female

DRUGS (1)
  1. TYKERB [Suspect]
     Indication: BREAST CANCER METASTATIC
     Dosage: 1250MG PER DAY

REACTIONS (5)
  - FATIGUE [None]
  - HEPATOTOXICITY [None]
  - DIARRHOEA [None]
  - RASH [None]
  - DISEASE PROGRESSION [None]
